FAERS Safety Report 5673323-6 (Version None)
Quarter: 2008Q1

REPORT INFORMATION
  Report Type: 
  Country: None (occurrence: None)
  Receive Date: 20080319
  Receipt Date: 20080314
  Transmission Date: 20080703
  Serious: Yes (Disabling)
  Sender: FDA-Public Use
  Company Number: CA-ASTRAZENECA-2008UW05385

PATIENT
  Age: 53 Year
  Sex: Female

DRUGS (3)
  1. ATACAND [Suspect]
     Route: 048
     Dates: start: 20071211
  2. PANTOPRAZOLE SODIUM [Concomitant]
     Indication: HYPERCHLORHYDRIA
     Route: 048
     Dates: start: 20071211
  3. SERC [Concomitant]
     Indication: VERTIGO
     Route: 048
     Dates: start: 20080303

REACTIONS (2)
  - PHARYNGEAL OEDEMA [None]
  - SWOLLEN TONGUE [None]
